FAERS Safety Report 4567123-8 (Version None)
Quarter: 2005Q1

REPORT INFORMATION
  Report Type: 
  Country: None (occurrence: None)
  Receive Date: 20050127
  Receipt Date: 20050113
  Transmission Date: 20050727
  Serious: Yes (Other)
  Sender: FDA-Public Use
  Company Number: S05-USA-00229-01

PATIENT
  Age: 75 Year
  Sex: Male

DRUGS (15)
  1. NAMENDA [Suspect]
     Indication: DEMENTIA ALZHEIMER'S TYPE
     Dosage: 15 MG QD PO
     Route: 048
     Dates: start: 20041231, end: 20050106
  2. NAMENDA [Suspect]
     Indication: DEMENTIA ALZHEIMER'S TYPE
     Dosage: 10 MG BID PO
     Route: 048
     Dates: start: 20050107
  3. NAMENDA [Suspect]
     Indication: DEMENTIA ALZHEIMER'S TYPE
     Dosage: 5 MG QD PO
     Route: 048
     Dates: start: 20041217, end: 20041223
  4. NAMENDA [Suspect]
     Indication: DEMENTIA ALZHEIMER'S TYPE
     Dosage: 5 MG BID PO
     Route: 048
     Dates: start: 20041224, end: 20041230
  5. WARFARIN SODIUM [Concomitant]
  6. LOPRESSOR [Concomitant]
  7. NIACIN [Concomitant]
  8. QUETIAPINE [Concomitant]
  9. DONEPEZIL HCL [Concomitant]
  10. LISINOPRIL [Concomitant]
  11. IMDUR [Concomitant]
  12. ASPIRIN [Concomitant]
  13. LEVOTHYROXINE [Concomitant]
  14. FOLIC ACID [Concomitant]
  15. MULTI-VITAMIN [Concomitant]

REACTIONS (1)
  - INTERNATIONAL NORMALISED RATIO INCREASED [None]
